FAERS Safety Report 19840912 (Version 1)
Quarter: 2021Q3

REPORT INFORMATION
  Report Type: Other
  Country: CA (occurrence: CA)
  Receive Date: 20210915
  Receipt Date: 20210915
  Transmission Date: 20211014
  Serious: Yes (Hospitalization)
  Sender: FDA-Public Use
  Company Number: CA-CELLTRION INC.-2021CA011412

PATIENT

DRUGS (13)
  1. DIPHENHYDRAMINE HYDROCHLORIDE. [Concomitant]
     Active Substance: DIPHENHYDRAMINE HYDROCHLORIDE
     Indication: PREMEDICATION
     Dosage: 50 MILLIGRAM
     Route: 048
  2. METFORMIN [Concomitant]
     Active Substance: METFORMIN HYDROCHLORIDE
     Route: 065
  3. TAMSULOSIN [Concomitant]
     Active Substance: TAMSULOSIN
  4. ACETAMINOPHEN. [Concomitant]
     Active Substance: ACETAMINOPHEN
     Indication: PREMEDICATION
     Dosage: 1000 MG
     Route: 048
  5. CALCIUM [Concomitant]
     Active Substance: CALCIUM
  6. METHYLPREDNISOLONE. [Concomitant]
     Active Substance: METHYLPREDNISOLONE
     Indication: PREMEDICATION
     Dosage: 100 MG
     Route: 042
  7. CANDESARTAN. [Concomitant]
     Active Substance: CANDESARTAN
  8. OLANZAPINE. [Concomitant]
     Active Substance: OLANZAPINE
  9. RITUXIMAB. [Suspect]
     Active Substance: RITUXIMAB
     Dosage: 1000 MILLIGRAM
     Route: 042
  10. RITUXIMAB. [Suspect]
     Active Substance: RITUXIMAB
     Dosage: 500 MG 1 EVERY 15 DAYS
     Route: 042
  11. RITUXIMAB. [Suspect]
     Active Substance: RITUXIMAB
     Indication: VASCULITIS
     Dosage: UNK
     Route: 042
  12. ROSUVASTATIN. [Concomitant]
     Active Substance: ROSUVASTATIN
     Route: 058
  13. VALPROATE SEMISODIUM [Concomitant]
     Active Substance: DIVALPROEX SODIUM

REACTIONS (14)
  - Thirst [Recovered/Resolved]
  - Off label use [Recovered/Resolved]
  - Pneumonia [Recovered/Resolved]
  - Off label use [Unknown]
  - Blood pressure diastolic decreased [Recovered/Resolved]
  - Initial insomnia [Recovered/Resolved]
  - COVID-19 [Recovered/Resolved]
  - Blood pressure systolic abnormal [Recovered/Resolved]
  - Feeling hot [Recovered/Resolved]
  - Blood pressure diastolic abnormal [Recovered/Resolved]
  - Heart rate decreased [Recovered/Resolved]
  - Oxygen saturation decreased [Recovered/Resolved]
  - Respiratory rate increased [Recovered/Resolved]
  - Blood pressure systolic increased [Recovered/Resolved]
